FAERS Safety Report 10789859 (Version 1)
Quarter: 2015Q1

REPORT INFORMATION
  Report Type: Spontaneous
  Country: FR (occurrence: FR)
  Receive Date: 20150212
  Receipt Date: 20150212
  Transmission Date: 20150721
  Serious: Yes (Other)
  Sender: FDA-Public Use
  Company Number: FR-SA-2015SA016026

PATIENT
  Age: 38 Year
  Sex: Female

DRUGS (8)
  1. ITRACONAZOLE. [Suspect]
     Active Substance: ITRACONAZOLE
     Indication: BRONCHOPULMONARY ASPERGILLOSIS
     Route: 065
     Dates: start: 20141015
  2. SERETIDE [Suspect]
     Active Substance: FLUTICASONE FUROATE\SALMETEROL XINAFOATE
     Route: 065
     Dates: end: 20150105
  3. PREDNISONE. [Suspect]
     Active Substance: PREDNISONE
     Dosage: GRADUAL DECREASE
     Route: 065
     Dates: start: 20141022, end: 20150105
  4. LOVENOX [Suspect]
     Active Substance: ENOXAPARIN SODIUM
     Route: 065
     Dates: end: 20150105
  5. PULMOZYME [Suspect]
     Active Substance: DORNASE ALFA
     Dosage: SOLUTION FOR INHALATION BY NEBULIZER IN AMPOULE
     Route: 055
     Dates: end: 20150105
  6. PREDNISONE. [Suspect]
     Active Substance: PREDNISONE
     Route: 065
     Dates: start: 20141015
  7. VENTOLINE [Suspect]
     Active Substance: ALBUTEROL
     Route: 065
     Dates: end: 20150105
  8. ITRACONAZOLE. [Suspect]
     Active Substance: ITRACONAZOLE
     Indication: BRONCHOPULMONARY ASPERGILLOSIS
     Route: 065
     Dates: start: 20141022, end: 20141225

REACTIONS (1)
  - Foetal death [Unknown]

NARRATIVE: CASE EVENT DATE: 20150105
